FAERS Safety Report 7025668-5 (Version None)
Quarter: 2010Q4

REPORT INFORMATION
  Report Type: 
  Country: None (occurrence: None)
  Receive Date: 20101004
  Receipt Date: 20100927
  Transmission Date: 20110411
  Serious: Yes (Other)
  Sender: FDA-Public Use
  Company Number: CO-BAYER-201019334LA

PATIENT
  Age: 39 Year
  Sex: Female
  Weight: 57 kg

DRUGS (1)
  1. MIRENA [Suspect]
     Indication: CONTRACEPTION
     Dosage: FREQUENCY: CONTINUOUS
     Route: 015
     Dates: start: 20090201, end: 20100801

REACTIONS (4)
  - ENDOMETRIAL HYPERTROPHY [None]
  - METRORRHAGIA [None]
  - NECROSIS [None]
  - PREGNANCY WITH CONTRACEPTIVE DEVICE [None]
